FAERS Safety Report 6254075-8 (Version None)
Quarter: 2009Q2

REPORT INFORMATION
  Report Type: 
  Country: None (occurrence: None)
  Receive Date: 20090630
  Receipt Date: 20090630
  Transmission Date: 20091009
  Serious: Yes (Death)
  Sender: FDA-Public Use
  Company Number: None

PATIENT
  Sex: Male
  Weight: 140.6151 kg

DRUGS (2)
  1. BUPIVACAINE [Suspect]
     Indication: PROCEDURAL PAIN
     Dosage: AUTOMATIC PUMP
     Dates: start: 20090325, end: 20090327
  2. OXYCODONE [Suspect]
     Indication: PROCEDURAL PAIN
     Dosage: AS NEEDED PO
     Route: 048
     Dates: start: 20090325, end: 20090327

REACTIONS (8)
  - ACCIDENTAL DEATH [None]
  - DRUG TOXICITY [None]
  - DYSURIA [None]
  - FOAMING AT MOUTH [None]
  - HEADACHE [None]
  - HYPERHIDROSIS [None]
  - PERIPHERAL COLDNESS [None]
  - PROCEDURAL PAIN [None]
